FAERS Safety Report 24546789 (Version 1)
Quarter: 2024Q4

REPORT INFORMATION
  Report Type: Report from Study
  Country: US (occurrence: US)
  Receive Date: 20241024
  Receipt Date: 20241024
  Transmission Date: 20250114
  Serious: Yes (Hospitalization, Other)
  Sender: ABBVIE
  Company Number: US-ABBVIE-5970393

PATIENT
  Sex: Male

DRUGS (1)
  1. VENCLEXTA [Suspect]
     Active Substance: VENETOCLAX
     Indication: Chronic lymphocytic leukaemia
     Dosage: TAKE 4 TABLETS BY MOUTH ONCE DAILY
     Route: 048
     Dates: end: 2024

REACTIONS (6)
  - Splenic rupture [Unknown]
  - Aortic valve incompetence [Unknown]
  - Syncope [Unknown]
  - Fall [Unknown]
  - Rib fracture [Unknown]
  - Illness [Unknown]
